FAERS Safety Report 8925510 (Version 1)
Quarter: 2012Q4

REPORT INFORMATION
  Report Type: 
  Country: TW (occurrence: TW)
  Receive Date: 20121126
  Receipt Date: 20121126
  Transmission Date: 20130627
  Serious: Yes (Other)
  Sender: FDA-Public Use
  Company Number: TW-ABBOTT-12P-153-0955232-00

PATIENT
  Age: 35 Year
  Sex: Male

DRUGS (7)
  1. HUMIRA 40 MG/ 0.8 ML PRE-FILLED SYRINGE [Suspect]
     Indication: PSORIASIS
     Route: 058
     Dates: start: 20120416, end: 20120611
  2. ENBREL [Suspect]
     Indication: PSORIASIS
     Route: 058
     Dates: start: 201106, end: 201109
  3. ENBREL [Suspect]
     Route: 058
     Dates: start: 201109, end: 201202
  4. CORT-S [Concomitant]
     Indication: PSORIASIS
     Dosage: 1% 50g/box; twice a day
     Route: 061
     Dates: start: 20111216
  5. DAIVOBET [Concomitant]
     Indication: PSORIASIS
     Dosage: Oint; 30g/tube every day
     Route: 061
  6. DERMOVATE [Concomitant]
     Indication: PSORIASIS
     Dosage: 0.05% 5g/tube; twice a day
  7. ELOMET [Concomitant]
     Indication: PSORIASIS
     Dosage: Cream; 0.1% 5g; Every day
     Route: 061

REACTIONS (2)
  - Retinal vein occlusion [Recovered/Resolved with Sequelae]
  - Drug ineffective [Unknown]
